FAERS Safety Report 23506761 (Version 8)
Quarter: 2024Q1

REPORT INFORMATION
  Report Type: Spontaneous
  Country: JP (occurrence: None)
  Receive Date: 20240209
  Receipt Date: 20240315
  Transmission Date: 20240410
  Serious: Yes (Hospitalization)
  Sender: FDA-Public Use
  Company Number: JP-ROCHE-3478387

PATIENT
  Age: 14 Year
  Sex: Female

DRUGS (7)
  1. XOFLUZA [Suspect]
     Active Substance: BALOXAVIR MARBOXIL
     Indication: Influenza
     Route: 048
     Dates: start: 20231205, end: 20231205
  2. ASVERIN (TIPEPIDINE HIBENZATE) [Concomitant]
     Active Substance: TIPEPIDINE HIBENZATE
     Indication: Influenza
     Route: 048
     Dates: start: 20231205, end: 20231208
  3. ASVERIN (TIPEPIDINE HIBENZATE) [Concomitant]
     Active Substance: TIPEPIDINE HIBENZATE
     Indication: Upper respiratory tract inflammation
  4. CARBOCYSTEINE [Concomitant]
     Active Substance: CARBOCYSTEINE
     Indication: Influenza
     Route: 048
     Dates: start: 20231205, end: 20231208
  5. CARBOCYSTEINE [Concomitant]
     Active Substance: CARBOCYSTEINE
     Indication: Upper respiratory tract inflammation
  6. CALONAL [Concomitant]
     Active Substance: ACETAMINOPHEN
     Indication: Influenza
     Route: 048
     Dates: start: 20231205
  7. CALONAL [Concomitant]
     Active Substance: ACETAMINOPHEN
     Indication: Upper respiratory tract inflammation

REACTIONS (2)
  - Haematochezia [Recovered/Resolved]
  - Enterocolitis [Recovering/Resolving]

NARRATIVE: CASE EVENT DATE: 20231206
